FAERS Safety Report 5818292-0 (Version None)
Quarter: 2008Q3

REPORT INFORMATION
  Report Type: 
  Country: None (occurrence: None)
  Receive Date: 20080716
  Receipt Date: 20080708
  Transmission Date: 20090109
  Serious: Yes (Death)
  Sender: FDA-Public Use
  Company Number: 2008-01674

PATIENT
  Age: 61 Year
  Sex: Male
  Weight: 56 kg

DRUGS (7)
  1. VELCADE [Suspect]
     Indication: MULTIPLE MYELOMA
     Dosage: 2 MG, INTRAVENOUS
     Route: 042
     Dates: start: 20071223, end: 20080115
  2. DEXAMETHASONE [Concomitant]
  3. CANDESARTAN CILEXETIL [Concomitant]
  4. ALLOPURINOL [Concomitant]
  5. OMEPRAL (OMEPRAZOLE) [Concomitant]
  6. OXYCONTIN [Concomitant]
  7. SODIUM BICARBONATE [Concomitant]

REACTIONS (2)
  - DISEASE PROGRESSION [None]
  - NEOPLASM [None]
